FAERS Safety Report 16157995 (Version 1)
Quarter: 2019Q2

REPORT INFORMATION
  Report Type: Spontaneous
  Country: US (occurrence: US)
  Receive Date: 20190228
  Receipt Date: 20190228
  Transmission Date: 20190711
  Serious: Yes (Other)
  Sender: FDA-Public Use
  Company Number: None

PATIENT
  Age: 61 Year
  Sex: Male

DRUGS (1)
  1. ALBUTEROL. [Suspect]
     Active Substance: ALBUTEROL
     Dosage: ?          OTHER DOSE:1 PUFFS;OTHER FREQUENCY:OTHER;?
     Route: 048
     Dates: start: 20171106, end: 20171122

REACTIONS (2)
  - Drug ineffective [None]
  - Product substitution issue [None]
